FAERS Safety Report 8040039-0 (Version None)
Quarter: 2012Q1

REPORT INFORMATION
  Report Type: 
  Country: None (occurrence: None)
  Receive Date: 20120111
  Receipt Date: 20111223
  Transmission Date: 20120608
  Serious: No
  Sender: FDA-Public Use
  Company Number: US-AMGEN-USASP2011068782

PATIENT
  Age: 84 Year
  Sex: Female

DRUGS (10)
  1. ENBREL [Suspect]
     Indication: PRODUCT USED FOR UNKNOWN INDICATION
     Dosage: 50 MG, UNK
  2. MICARDIS [Concomitant]
     Dosage: UNK
  3. TIMOPTIC [Concomitant]
     Dosage: UNK
  4. PROTONIX [Concomitant]
     Dosage: UNK
  5. VITAMIN C                          /00008001/ [Concomitant]
     Dosage: UNK
  6. ALENDRONATE SODIUM [Concomitant]
     Dosage: UNK
  7. CALTRATE                           /00751519/ [Concomitant]
     Dosage: UNK
  8. TRAVATAN [Concomitant]
     Dosage: UNK
  9. MULTIVITAMIN                       /00097801/ [Concomitant]
     Dosage: UNK
  10. ACETAMINOPHEN [Concomitant]
     Dosage: UNK

REACTIONS (2)
  - MEMORY IMPAIRMENT [None]
  - ANXIETY [None]
